FAERS Safety Report 4950061-6 (Version None)
Quarter: 2006Q1

REPORT INFORMATION
  Report Type: 
  Country: None (occurrence: None)
  Receive Date: 20060320
  Receipt Date: 20060320
  Transmission Date: 20060701
  Serious: Yes (Hospitalization)
  Sender: FDA-Public Use
  Company Number: None

PATIENT
  Age: 58 Year
  Sex: Female
  Weight: 107 kg

DRUGS (1)
  1. HYDROCHLOROTHIAZIDE [Suspect]
     Indication: HYPERTENSION
     Dosage: 25 MG PO QAM
     Route: 048
     Dates: start: 20050729, end: 20051007

REACTIONS (4)
  - CHILLS [None]
  - DIARRHOEA [None]
  - PANCREATITIS [None]
  - TREMOR [None]
